FAERS Safety Report 7401481-1 (Version None)
Quarter: 2011Q2

REPORT INFORMATION
  Report Type: 
  Country: None (occurrence: None)
  Receive Date: 20110408
  Receipt Date: 20110318
  Transmission Date: 20111010
  Serious: Yes (Other)
  Sender: FDA-Public Use
  Company Number: RO-ELI_LILLY_AND_COMPANY-RO201103006606

PATIENT
  Sex: Male
  Weight: 75 kg

DRUGS (3)
  1. GEMCITABINE HYDROCHLORIDE [Suspect]
     Indication: NON-SMALL CELL LUNG CANCER
     Dosage: 2363 MG, UNK
     Route: 042
     Dates: start: 20110311, end: 20110311
  2. CISPLATIN [Suspect]
     Indication: NON-SMALL CELL LUNG CANCER
     Dosage: 142 MG, UNK
     Route: 042
     Dates: start: 20110311, end: 20110311
  3. NECITUMUMAB (11F8) (LY3012211) [Suspect]
     Indication: NON-SMALL CELL LUNG CANCER
     Dosage: 800 MG, UNK
     Route: 042
     Dates: start: 20110311, end: 20110311

REACTIONS (1)
  - GENERAL PHYSICAL HEALTH DETERIORATION [None]
